FAERS Safety Report 9411883 (Version 1)
Quarter: 2013Q3

REPORT INFORMATION
  Report Type: Spontaneous
  Country: TR (occurrence: TR)
  Receive Date: 20130722
  Receipt Date: 20130722
  Transmission Date: 20140515
  Serious: Yes (Disabling, Other)
  Sender: FDA-Public Use
  Company Number: PHHY2013TR077194

PATIENT
  Age: 48 Year
  Sex: Female
  Weight: 49 kg

DRUGS (2)
  1. GLIVEC [Suspect]
     Indication: GASTROINTESTINAL STROMAL TUMOUR
     Dosage: 400 MG, DAILY
     Route: 048
     Dates: start: 20130528, end: 20130611
  2. GLIVEC [Suspect]
     Dosage: UNK UKN, UNK

REACTIONS (2)
  - Pain in extremity [Not Recovered/Not Resolved]
  - Haemangioma [Not Recovered/Not Resolved]
